FAERS Safety Report 9613750 (Version 1)
Quarter: 2013Q4

REPORT INFORMATION
  Report Type: Spontaneous
  Country: NL (occurrence: NL)
  Receive Date: 20131010
  Receipt Date: 20131010
  Transmission Date: 20140711
  Serious: Yes (Hospitalization)
  Sender: FDA-Public Use
  Company Number: NL-UCBSA-099427

PATIENT
  Age: 21 Year
  Sex: Male

DRUGS (2)
  1. KEPPRA [Suspect]
     Indication: EPILEPSY
     Route: 048
     Dates: start: 2008
  2. AERIUS [Concomitant]
     Route: 048
     Dates: start: 2003

REACTIONS (2)
  - Spinal fracture [Unknown]
  - Osteoporosis [Recovering/Resolving]
